FAERS Safety Report 20160613 (Version 5)
Quarter: 2022Q1

REPORT INFORMATION
  Report Type: Report from Study
  Country: KR (occurrence: None)
  Receive Date: 20211208
  Receipt Date: 20220324
  Transmission Date: 20220423
  Serious: Yes (Hospitalization)
  Sender: FDA-Public Use
  Company Number: KR-Eisai Medical Research-EC-2021-102865

PATIENT
  Age: 73 Year
  Sex: Male
  Weight: 63.85 kg

DRUGS (17)
  1. LENVATINIB [Suspect]
     Active Substance: LENVATINIB
     Indication: Hepatocellular carcinoma
     Route: 048
     Dates: start: 20210928, end: 20211019
  2. PEMBROLIZUMAB [Suspect]
     Active Substance: PEMBROLIZUMAB
     Indication: Hepatocellular carcinoma
     Dosage: MK-1308A (COFORMULATED QUAVONLIMAB (MK-1308) 25MG (+) PEMBROLIZUMAB (MK-3475) 400MG)
     Route: 041
     Dates: start: 20210928, end: 20210928
  3. LYRICA [Concomitant]
     Active Substance: PREGABALIN
     Dates: start: 20211005
  4. LINAGLIPTIN [Concomitant]
     Active Substance: LINAGLIPTIN
     Dates: start: 201912
  5. GLICLAZIDE [Concomitant]
     Active Substance: GLICLAZIDE
     Dates: start: 201912
  6. DIABEX [Concomitant]
     Active Substance: METFORMIN HYDROCHLORIDE
     Dates: start: 201912
  7. LACTULOSE [Concomitant]
     Active Substance: LACTULOSE
     Dates: start: 20210629
  8. MYTONIN [Concomitant]
     Dates: start: 2020
  9. CHOLINE ALFOSCERATE [Concomitant]
     Active Substance: CHOLINE ALFOSCERATE
     Dates: start: 20210914
  10. NALOXONE HYDROCHLORIDE\OXYCODONE HYDROCHLORIDE [Concomitant]
     Active Substance: NALOXONE HYDROCHLORIDE\OXYCODONE HYDROCHLORIDE
     Dates: start: 20210918
  11. DIETARY SUPPLEMENT\HERBALS\MILK THISTLE [Concomitant]
     Active Substance: DIETARY SUPPLEMENT\HERBALS\MILK THISTLE
     Dates: start: 20210918
  12. URSODIOL [Concomitant]
     Active Substance: URSODIOL
     Dates: start: 20210918
  13. KETOTOP EL [Concomitant]
     Dates: start: 20211005
  14. OXYCODONE HYDROCHLORIDE [Concomitant]
     Active Substance: OXYCODONE HYDROCHLORIDE
     Dates: start: 20211005
  15. TACENOL [Concomitant]
  16. RAMIPRIL [Concomitant]
     Active Substance: RAMIPRIL
     Dates: start: 20211019
  17. QUAVONLIMAB [Suspect]
     Active Substance: QUAVONLIMAB

REACTIONS (1)
  - Immune-mediated hepatitis [Recovered/Resolved]

NARRATIVE: CASE EVENT DATE: 20211102
